FAERS Safety Report 23487240 (Version 2)
Quarter: 2025Q3

REPORT INFORMATION
  Report Type: Spontaneous
  Country: EU (occurrence: EU)
  Receive Date: 20240206
  Receipt Date: 20250807
  Transmission Date: 20251020
  Serious: Yes (Other)
  Sender: NOVARTIS
  Company Number: EU-002147023-NVSC2024FR023971

PATIENT
  Sex: Female

DRUGS (1)
  1. MEKINIST [Suspect]
     Active Substance: TRAMETINIB DIMETHYL SULFOXIDE
     Indication: Glioneuronal tumour
     Route: 065
     Dates: start: 20180409, end: 20180429

REACTIONS (7)
  - Status epilepticus [Unknown]
  - Metastases to meninges [Unknown]
  - Cauda equina syndrome [Unknown]
  - Paraparesis [Unknown]
  - Balance disorder [Unknown]
  - Neoplasm progression [Unknown]
  - Off label use [Unknown]

NARRATIVE: CASE EVENT DATE: 20230101
